FAERS Safety Report 6685824-2 (Version None)
Quarter: 2010Q2

REPORT INFORMATION
  Report Type: 
  Country: None (occurrence: None)
  Receive Date: 20100419
  Receipt Date: 20100408
  Transmission Date: 20101027
  Serious: Yes (Other)
  Sender: FDA-Public Use
  Company Number: US-JNJFOC-20100304847

PATIENT
  Sex: Male
  Weight: 135.17 kg

DRUGS (11)
  1. FENTANYL CITRATE [Suspect]
     Indication: INTERVERTEBRAL DISC PROTRUSION
     Route: 062
  2. FENTANYL CITRATE [Suspect]
     Indication: SPINAL FUSION SURGERY
     Route: 062
  3. FENTANYL CITRATE [Suspect]
     Route: 062
  4. FENTANYL CITRATE [Suspect]
     Route: 062
  5. NEURONTIN [Concomitant]
     Indication: NEURALGIA
     Route: 048
  6. SKELAXIN [Concomitant]
     Indication: MUSCLE RELAXANT THERAPY
     Route: 048
  7. OXYCODONE HCL [Concomitant]
     Indication: PAIN
     Route: 048
  8. TRAZODONE [Concomitant]
     Indication: SLEEP DISORDER
     Route: 048
  9. FUROSEMIDE [Concomitant]
     Indication: FLUID RETENTION
     Route: 048
  10. K DUR [Concomitant]
     Indication: ELECTROLYTE SUBSTITUTION THERAPY
     Route: 048
  11. XANAX [Concomitant]
     Indication: STRESS
     Route: 048

REACTIONS (5)
  - DRUG ADMINISTERED AT INAPPROPRIATE SITE [None]
  - RESPIRATORY DISORDER [None]
  - RESPIRATORY TRACT INFECTION [None]
  - WEIGHT DECREASED [None]
  - WRONG TECHNIQUE IN DRUG USAGE PROCESS [None]
